FAERS Safety Report 7795409-2 (Version None)
Quarter: 2011Q3

REPORT INFORMATION
  Report Type: 
  Country: None (occurrence: None)
  Receive Date: 20110930
  Receipt Date: 20110919
  Transmission Date: 20111222
  Serious: Yes (Hospitalization)
  Sender: FDA-Public Use
  Company Number: 2011CP000153

PATIENT
  Age: 1 Day
  Sex: Female

DRUGS (1)
  1. ACETAMINOPHEN [Suspect]
     Dosage: 1 DOSAGE FORM; IV
     Route: 042
     Dates: start: 20110615, end: 20110616

REACTIONS (5)
  - JAUNDICE NEONATAL [None]
  - MEDICATION ERROR [None]
  - HYPOPROTHROMBINAEMIA [None]
  - ACCIDENTAL OVERDOSE [None]
  - PREMATURE BABY [None]
